FAERS Safety Report 7097656-4 (Version None)
Quarter: 2010Q4

REPORT INFORMATION
  Report Type: 
  Country: None (occurrence: None)
  Receive Date: 20101112
  Receipt Date: 20101102
  Transmission Date: 20110411
  Serious: Yes (Hospitalization)
  Sender: FDA-Public Use
  Company Number: US-BIOGENIDEC-2010BI038608

PATIENT
  Age: 36 Year
  Sex: Male

DRUGS (3)
  1. AVONEX [Suspect]
     Indication: MULTIPLE SCLEROSIS
     Route: 030
     Dates: start: 20030701
  2. TYSABRI [Concomitant]
     Indication: MULTIPLE SCLEROSIS
     Route: 042
     Dates: start: 20091015
  3. BACLOFEN [Concomitant]

REACTIONS (3)
  - DRUG DELIVERY DEVICE IMPLANTATION [None]
  - DRUG INEFFECTIVE [None]
  - MOBILITY DECREASED [None]
